FAERS Safety Report 15994953 (Version 2)
Quarter: 2021Q1

REPORT INFORMATION
  Report Type: Spontaneous
  Country: US (occurrence: US)
  Receive Date: 20190222
  Receipt Date: 20210119
  Transmission Date: 20210419
  Serious: Yes (Life-Threatening, Hospitalization)
  Sender: FDA-Public Use
  Company Number: US-TORRENT-00007694

PATIENT
  Age: 48 Year
  Sex: Female

DRUGS (2)
  1. LAMOTRIGINE. [Suspect]
     Active Substance: LAMOTRIGINE
     Indication: PRODUCT USED FOR UNKNOWN INDICATION
     Route: 048
  2. BUPROPION. [Concomitant]
     Active Substance: BUPROPION
     Indication: PRODUCT USED FOR UNKNOWN INDICATION
     Dosage: UNKNOWN

REACTIONS (11)
  - Overdose [Unknown]
  - Status epilepticus [Unknown]
  - Brain injury [Unknown]
  - Pulse absent [Unknown]
  - Drug level above therapeutic [Unknown]
  - Supraventricular tachycardia [Unknown]
  - Circulatory collapse [Unknown]
  - Toxicity to various agents [Unknown]
  - Tachycardia [Unknown]
  - Brain oedema [Unknown]
  - Cardiac arrest [Unknown]
